FAERS Safety Report 5929112-8 (Version None)
Quarter: 2008Q4

REPORT INFORMATION
  Report Type: 
  Country: None (occurrence: None)
  Receive Date: 20081024
  Receipt Date: 20081017
  Transmission Date: 20090506
  Serious: Yes (Life-Threatening)
  Sender: FDA-Public Use
  Company Number: GB-TEVA-179106ISR

PATIENT
  Age: 63 Year
  Sex: Male

DRUGS (1)
  1. DOXYCYCLINE [Suspect]
     Indication: ROSACEA
     Route: 048
     Dates: start: 20080512, end: 20080909

REACTIONS (5)
  - APATHY [None]
  - DEPRESSED MOOD [None]
  - DISTURBANCE IN ATTENTION [None]
  - IRRITABILITY [None]
  - SUICIDAL IDEATION [None]
